FAERS Safety Report 14920122 (Version 1)
Quarter: 2018Q2

REPORT INFORMATION
  Report Type: Spontaneous
  Country: US (occurrence: US)
  Receive Date: 20180521
  Receipt Date: 20180521
  Transmission Date: 20180711
  Serious: Yes (Other)
  Sender: FDA-Public Use
  Company Number: US-OTSUKA-2018_012856

PATIENT
  Age: 61 Year
  Sex: Male

DRUGS (8)
  1. MESNA. [Concomitant]
     Active Substance: MESNA
     Indication: PROPHYLAXIS
  2. URSODIOL. [Concomitant]
     Active Substance: URSODIOL
     Indication: PRODUCT USED FOR UNKNOWN INDICATION
     Dosage: 300 MG, BID
     Route: 065
  3. CYCLOPHOSPHAMIDE. [Suspect]
     Active Substance: CYCLOPHOSPHAMIDE
     Indication: NON-HODGKIN^S LYMPHOMA
     Dosage: 60 MG/KG, QD
     Route: 042
  4. MESNA. [Concomitant]
     Active Substance: MESNA
     Indication: BLADDER DISORDER
     Dosage: 15 MG/KG, QID
     Route: 065
  5. THIOTEPA. [Suspect]
     Active Substance: THIOTEPA
     Indication: NON-HODGKIN^S LYMPHOMA
     Dosage: 250 MG/M2, QD
     Route: 042
  6. FILGRASTIM [Concomitant]
     Active Substance: FILGRASTIM
     Indication: PRODUCT USED FOR UNKNOWN INDICATION
     Dosage: 5-10 ?G/KG, QD
     Route: 042
  7. FLUCONAZOLE. [Concomitant]
     Active Substance: FLUCONAZOLE
     Indication: INFECTION PROPHYLAXIS
     Dosage: UNK
     Route: 065
  8. BUSULFAN. [Suspect]
     Active Substance: BUSULFAN
     Indication: NON-HODGKIN^S LYMPHOMA
     Dosage: UNK (0.67 OR 0.8 MG/KG, EVERY 6 HOURS FOR 12 DOSES)
     Route: 042

REACTIONS (1)
  - Pulmonary toxicity [Unknown]
